FAERS Safety Report 13164537 (Version 1)
Quarter: 2017Q1

REPORT INFORMATION
  Report Type: Spontaneous
  Country: US (occurrence: US)
  Receive Date: 20170130
  Receipt Date: 20170130
  Transmission Date: 20170428
  Serious: No
  Sender: FDA-Public Use
  Company Number: US-ABBVIE-16P-163-1686616-00

PATIENT
  Age: 61 Year
  Sex: Male
  Weight: 122.58 kg

DRUGS (6)
  1. LUPRON DEPOT [Suspect]
     Active Substance: LEUPROLIDE ACETATE
     Indication: PROSTATE CANCER
     Route: 030
     Dates: start: 20111003
  2. LUPRON DEPOT [Suspect]
     Active Substance: LEUPROLIDE ACETATE
     Indication: PROSTATE CANCER
     Route: 030
     Dates: start: 2011
  3. CASODEX (NON-ABBVIE) [Concomitant]
     Indication: PROSTATE CANCER
     Route: 065
  4. FLOMAX (NON-ABBVIE) [Concomitant]
     Indication: PROSTATOMEGALY
     Route: 065
  5. LANTUS (NON-ABBVIE) [Concomitant]
     Indication: TYPE 2 DIABETES MELLITUS
     Route: 065
  6. COUMADIN (NON-ABBVIE) [Concomitant]
     Indication: ANTICOAGULANT THERAPY
     Route: 065

REACTIONS (1)
  - Abscess [Not Recovered/Not Resolved]

NARRATIVE: CASE EVENT DATE: 201110
